FAERS Safety Report 9711123 (Version 1)
Quarter: 2013Q4

REPORT INFORMATION
  Report Type: Spontaneous
  Country: US (occurrence: US)
  Receive Date: 20131126
  Receipt Date: 20131126
  Transmission Date: 20140711
  Serious: No
  Sender: FDA-Public Use
  Company Number: US-BRISTOL-MYERS SQUIBB COMPANY-19149806

PATIENT
  Age: 72 Year
  Sex: Male
  Weight: 106.57 kg

DRUGS (2)
  1. BYETTA [Suspect]
     Indication: TYPE 2 DIABETES MELLITUS
     Route: 058
  2. GLIPIZIDE [Concomitant]

REACTIONS (1)
  - Flatulence [Not Recovered/Not Resolved]
